FAERS Safety Report 13456588 (Version 1)
Quarter: 2017Q2

REPORT INFORMATION
  Report Type: Spontaneous
  Country: US (occurrence: US)
  Receive Date: 20170419
  Receipt Date: 20170419
  Transmission Date: 20170830
  Serious: No
  Sender: FDA-Public Use
  Company Number: None

PATIENT
  Age: 70 Year
  Sex: Female
  Weight: 56.7 kg

DRUGS (6)
  1. B VITAMINS [Concomitant]
     Active Substance: CYANOCOBALAMIN\DEXPANTHENOL\NIACINAMIDE\PYRIDOXINE HYDROCHLORIDE\RIBOFLAVIN 5^-PHOSPHATE SODIUM\THIAMINE HYDROCHLORIDE\VITAMIN B COMPLEX
  2. MSM [Concomitant]
     Active Substance: DIMETHYL SULFONE
  3. L-LYSINE [Concomitant]
     Active Substance: LYSINE
  4. CURCUMIN [Concomitant]
     Active Substance: CURCUMIN
  5. RAPID RELEASE ACETAMINOPHEN EXTRA STRENGTH [Suspect]
     Active Substance: ACETAMINOPHEN
     Indication: BREAST PAIN
     Route: 048
     Dates: start: 20170310, end: 20170314
  6. TUMERIC [Concomitant]
     Active Substance: HERBALS\TURMERIC

REACTIONS (8)
  - Hypophagia [None]
  - Hypersensitivity [None]
  - Asthenia [None]
  - Rash [None]
  - Dizziness [None]
  - Headache [None]
  - Pneumonitis [None]
  - Weight decreased [None]

NARRATIVE: CASE EVENT DATE: 20170310
